FAERS Safety Report 7652512-5 (Version None)
Quarter: 2011Q3

REPORT INFORMATION
  Report Type: 
  Country: None (occurrence: None)
  Receive Date: 20110803
  Receipt Date: 20110720
  Transmission Date: 20111222
  Serious: Yes (Hospitalization)
  Sender: FDA-Public Use
  Company Number: JP-ELI_LILLY_AND_COMPANY-JP201107005504

PATIENT
  Sex: Female

DRUGS (6)
  1. ALENDRONATE SODIUM [Concomitant]
     Route: 048
  2. TRACLEER [Concomitant]
     Route: 048
  3. MEDROL [Concomitant]
  4. WARFARIN SODIUM [Concomitant]
     Route: 048
  5. ADCIRCA [Suspect]
     Dosage: 40 MG, QD
     Route: 048
     Dates: start: 20110501, end: 20110701
  6. CRESTOR [Concomitant]
     Route: 048

REACTIONS (1)
  - HEPATIC FUNCTION ABNORMAL [None]
